FAERS Safety Report 15344412 (Version 2)
Quarter: 2018Q3

REPORT INFORMATION
  Report Type: Spontaneous
  Country: US (occurrence: US)
  Receive Date: 20180903
  Receipt Date: 20180924
  Transmission Date: 20181010
  Serious: Yes (Other)
  Sender: FDA-Public Use
  Company Number: US-SA-2018SA237524

PATIENT
  Age: 68 Year
  Sex: Female
  Weight: 77.1 kg

DRUGS (16)
  1. TAXOTERE [Suspect]
     Active Substance: DOCETAXEL
     Indication: BREAST CANCER FEMALE
     Dosage: 135 MG, Q3W
     Route: 042
     Dates: start: 20070927, end: 20070927
  2. AVELOX [Concomitant]
     Active Substance: MOXIFLOXACIN HYDROCHLORIDE
  3. PRAVACHOL [Concomitant]
     Active Substance: PRAVASTATIN SODIUM
     Dosage: UNK
     Dates: start: 20061001
  4. NORVASC [Concomitant]
     Active Substance: AMLODIPINE BESYLATE
     Dosage: UNK
  5. POTASSIUM CHLORIDE. [Concomitant]
     Active Substance: POTASSIUM CHLORIDE
  6. VERAPAMIL [Concomitant]
     Active Substance: VERAPAMIL HYDROCHLORIDE
     Dosage: UNK
     Dates: start: 20031001
  7. VIACTIV [CALCIUM] [Concomitant]
  8. LASIX [Concomitant]
     Active Substance: FUROSEMIDE
  9. TAXOTERE [Suspect]
     Active Substance: DOCETAXEL
     Dosage: 135 MG, Q3W
     Route: 042
     Dates: start: 20080110, end: 20080110
  10. HERCEPTIN [Concomitant]
     Active Substance: TRASTUZUMAB
  11. PARAPLATIN [Concomitant]
     Active Substance: CARBOPLATIN
  12. XALATAN [Concomitant]
     Active Substance: LATANOPROST
  13. ZOFRAN [ONDANSETRON] [Concomitant]
  14. VYTORIN [Concomitant]
     Active Substance: EZETIMIBE\SIMVASTATIN
  15. PHENERGAN [PROMETHAZINE] [Concomitant]
  16. OMEGA?3 [SALMO SALAR OIL] [Concomitant]

REACTIONS (1)
  - Alopecia [Recovering/Resolving]

NARRATIVE: CASE EVENT DATE: 20080701
